FAERS Safety Report 6747939-X (Version None)
Quarter: 2010Q2

REPORT INFORMATION
  Report Type: 
  Country: None (occurrence: None)
  Receive Date: 20100528
  Receipt Date: 20100521
  Transmission Date: 20101027
  Serious: Yes (Hospitalization)
  Sender: FDA-Public Use
  Company Number: NL-AMGEN-US410119

PATIENT
  Age: 53 Year
  Sex: Male
  Weight: 80 kg

DRUGS (10)
  1. ENBREL [Suspect]
     Indication: PSORIASIS
     Route: 058
     Dates: start: 20050427, end: 20090330
  2. ENBREL [Suspect]
     Route: 058
     Dates: start: 20091006, end: 20091207
  3. ENBREL [Suspect]
     Route: 058
     Dates: start: 20091208, end: 20100301
  4. PLAVIX [Concomitant]
     Dosage: 75 MG
  5. NIFEDIPINE [Concomitant]
     Dosage: 30 MG WITH UNKNOWN FREQUENCY
  6. RAMIPRIL [Concomitant]
  7. LIPITOR [Concomitant]
     Dosage: 20 MG FREQUENCY UNKNOWN
  8. ASPIRIN [Concomitant]
     Dosage: 80 MG UNKNOWN FREQUENCY
  9. METOPROLOL TARTRATE [Concomitant]
  10. LEVOTHYROXINE SODIUM [Concomitant]
     Dosage: 0.025 UG UNKNOWN FREQUENCY

REACTIONS (20)
  - ANHEDONIA [None]
  - ARTHRITIS REACTIVE [None]
  - COUGH [None]
  - DECREASED APPETITE [None]
  - DEPRESSION [None]
  - DIZZINESS [None]
  - DRUG INEFFECTIVE [None]
  - DUODENITIS [None]
  - FATIGUE [None]
  - GASTRITIS [None]
  - MALAISE [None]
  - METAPLASIA [None]
  - PARAESTHESIA [None]
  - PHOTOPHOBIA [None]
  - PYREXIA [None]
  - RASH [None]
  - SARCOIDOSIS [None]
  - SOMNOLENCE [None]
  - VOMITING [None]
  - WEIGHT DECREASED [None]
